FAERS Safety Report 9033362 (Version 1)
Quarter: 2013Q1

REPORT INFORMATION
  Report Type: Spontaneous
  Country: ES (occurrence: GB)
  Receive Date: 20130128
  Receipt Date: 20130128
  Transmission Date: 20140127
  Serious: Yes (Other)
  Sender: FDA-Public Use
  Company Number: GB-FRI-1000042178

PATIENT
  Age: 72 Year
  Sex: Male

DRUGS (12)
  1. ACLIDINIUM BROMIDE [Suspect]
     Dosage: 2 DF
     Route: 055
     Dates: start: 20121212
  2. ASPIRIN [Concomitant]
  3. ATENOLOL [Concomitant]
  4. CO-PROXAMOL [Concomitant]
  5. FUMARIC ACID [Concomitant]
  6. GLYCERYL TRINITRATE [Concomitant]
  7. NICORANDIL [Concomitant]
  8. OMEPRAZOLE [Concomitant]
  9. PHENYTOIN [Concomitant]
  10. SERETIDE [Concomitant]
     Route: 055
  11. SIMVADOR [Concomitant]
  12. VENTOLIN [Concomitant]
     Route: 055

REACTIONS (2)
  - Chest discomfort [Not Recovered/Not Resolved]
  - Cough [Not Recovered/Not Resolved]
